FAERS Safety Report 21263225 (Version 1)
Quarter: 2022Q3

REPORT INFORMATION
  Report Type: Spontaneous
  Country: US (occurrence: US)
  Receive Date: 20220829
  Receipt Date: 20220829
  Transmission Date: 20221027
  Serious: Yes (Other)
  Sender: FDA-Public Use
  Company Number: US-AUROBINDO-AUR-APL-2022-033674

PATIENT
  Age: 6 Decade
  Sex: Female

DRUGS (8)
  1. PREDNISONE [Suspect]
     Active Substance: PREDNISONE
     Indication: Metastatic malignant melanoma
     Dosage: 1 MILLIGRAM/KILOGRAM
     Route: 065
  2. PEMBROLIZUMAB [Concomitant]
     Active Substance: PEMBROLIZUMAB
     Indication: Metastatic malignant melanoma
     Dosage: 200 MILLIGRAM (EVERY 3 WEEKS FOR 7 CYCLES)
     Route: 042
     Dates: start: 201811
  3. ENCORAFENIB [Concomitant]
     Active Substance: ENCORAFENIB
     Indication: Product used for unknown indication
     Dosage: 450 MILLIGRAM, ONCE A DAY
     Route: 065
     Dates: start: 201909
  4. ENCORAFENIB [Concomitant]
     Active Substance: ENCORAFENIB
     Dosage: 225 MILLIGRAM, ONCE A DAY
     Route: 065
     Dates: start: 202002
  5. BINIMETINIB [Concomitant]
     Active Substance: BINIMETINIB
     Indication: Product used for unknown indication
     Dosage: 45 MILLIGRAM, TWO TIMES A DAY
     Route: 065
     Dates: start: 201909
  6. IPILIMUMAB [Concomitant]
     Active Substance: IPILIMUMAB
     Indication: Metastatic malignant melanoma
     Dosage: 1 MILLIGRAM/KILOGRAM (EVERY 3 WEEKS)
     Route: 042
  7. NIVOLUMAB [Concomitant]
     Active Substance: NIVOLUMAB
     Indication: Metastatic malignant melanoma
     Dosage: 3 MILLIGRAM/KILOGRAM (EVERY 3 WEEKS)
     Route: 042
     Dates: start: 201911
  8. DABRAFENIB\TRAMETINIB [Concomitant]
     Active Substance: DABRAFENIB\TRAMETINIB
     Indication: Product used for unknown indication
     Dosage: 100 MILLIGRAM, TWO TIMES A DAY
     Route: 065
     Dates: start: 201906

REACTIONS (4)
  - Polymyositis [Unknown]
  - Dysphagia [Unknown]
  - Dysarthria [Unknown]
  - Rebound effect [Unknown]
